FAERS Safety Report 9381744 (Version 1)
Quarter: 2013Q3

REPORT INFORMATION
  Report Type: Spontaneous
  Country: BR (occurrence: BR)
  Receive Date: 20130703
  Receipt Date: 20130703
  Transmission Date: 20140515
  Serious: Yes (Other)
  Sender: FDA-Public Use
  Company Number: BR-PFIZER INC-2013196871

PATIENT
  Age: 65 Year
  Sex: Female

DRUGS (4)
  1. CHAMPIX [Suspect]
     Indication: SMOKING CESSATION THERAPY
     Dosage: 1 TABLET (UNSPECIFIED DOSE), 2X/DAY (ONE IN THE MORNING AND ONE AT NIGHT)
     Route: 048
     Dates: start: 20130627
  2. BETAHISTINE HYDROCHLORIDE [Concomitant]
     Indication: VERTIGO
     Dosage: UNK
  3. FLUOXETINE [Concomitant]
     Indication: DEPRESSION
     Dosage: UNK
  4. RIVOTRIL [Concomitant]
     Indication: SEDATIVE THERAPY
     Dosage: UNK

REACTIONS (5)
  - Lung disorder [Unknown]
  - Labyrinthitis [Unknown]
  - Sleep disorder [Unknown]
  - Nausea [Not Recovered/Not Resolved]
  - Dizziness [Not Recovered/Not Resolved]
